FAERS Safety Report 6876271-9 (Version None)
Quarter: 2010Q3

REPORT INFORMATION
  Report Type: 
  Country: None (occurrence: None)
  Receive Date: 20100727
  Receipt Date: 20100722
  Transmission Date: 20110219
  Serious: Yes (Hospitalization)
  Sender: FDA-Public Use
  Company Number: B0648368A

PATIENT
  Sex: Female

DRUGS (5)
  1. VALTREX [Suspect]
     Indication: HERPES ZOSTER
     Dosage: 3000MG PER DAY
     Route: 048
     Dates: start: 20100406, end: 20100409
  2. CONIEL [Concomitant]
     Dosage: 2MG PER DAY
     Route: 048
     Dates: end: 20100409
  3. NADIC [Concomitant]
     Dosage: 30MG PER DAY
     Route: 048
     Dates: end: 20100409
  4. BENET [Concomitant]
     Dosage: 2.5MG PER DAY
     Route: 048
     Dates: end: 20100409
  5. PROCYLIN [Concomitant]
     Dosage: 120MCG PER DAY
     Route: 048
     Dates: end: 20100409

REACTIONS (6)
  - DECREASED APPETITE [None]
  - DYSARTHRIA [None]
  - DYSLALIA [None]
  - DYSURIA [None]
  - ENCEPHALOPATHY [None]
  - RENAL FAILURE ACUTE [None]
